FAERS Safety Report 18873677 (Version 1)
Quarter: 2021Q1

REPORT INFORMATION
  Report Type: Spontaneous
  Country: US (occurrence: US)
  Receive Date: 20210210
  Receipt Date: 20210210
  Transmission Date: 20210420
  Serious: No
  Sender: FDA-Public Use
  Company Number: US-SA-2021SA042529

PATIENT
  Age: 49 Year
  Sex: Female

DRUGS (1)
  1. DUPIXENT [Suspect]
     Active Substance: DUPILUMAB
     Dosage: 150 MG/ML
     Route: 058
     Dates: start: 202011

REACTIONS (3)
  - Dermatitis acneiform [Unknown]
  - Condition aggravated [Unknown]
  - Herpes simplex [Unknown]

NARRATIVE: CASE EVENT DATE: 20210119
